FAERS Safety Report 5615155-0 (Version None)
Quarter: 2008Q1

REPORT INFORMATION
  Report Type: 
  Country: None (occurrence: None)
  Receive Date: 20080206
  Receipt Date: 20070831
  Transmission Date: 20080703
  Serious: No
  Sender: FDA-Public Use
  Company Number: A0678123A

PATIENT
  Sex: Male

DRUGS (8)
  1. ARIXTRA [Suspect]
     Indication: DEEP VEIN THROMBOSIS
     Dosage: 10MG PER DAY
     Route: 058
     Dates: start: 20020501
  2. ACIPHEX [Concomitant]
  3. METFORMIN HCL [Concomitant]
  4. ATACAND [Concomitant]
  5. FLEXERIL [Concomitant]
  6. CELEBREX [Concomitant]
  7. ZYRTEC [Concomitant]
  8. FUROSEMIDE [Concomitant]

REACTIONS (1)
  - BLOOD GLUCOSE INCREASED [None]
